FAERS Safety Report 15945842 (Version 1)
Quarter: 2019Q1

REPORT INFORMATION
  Report Type: Spontaneous
  Country: US (occurrence: US)
  Receive Date: 20190211
  Receipt Date: 20190211
  Transmission Date: 20190417
  Serious: No
  Sender: FDA-Public Use
  Company Number: US-JNJFOC-20190133819

PATIENT
  Age: 67 Year
  Sex: Female
  Weight: 69.4 kg

DRUGS (4)
  1. FLECAINIDE [Concomitant]
     Active Substance: FLECAINIDE
     Route: 048
  2. METOPROLOL. [Concomitant]
     Active Substance: METOPROLOL
     Route: 048
  3. XARELTO [Suspect]
     Active Substance: RIVAROXABAN
     Indication: MYOCARDIAL INFARCTION
     Route: 048
     Dates: start: 201706, end: 2017
  4. XARELTO [Suspect]
     Active Substance: RIVAROXABAN
     Indication: MYOCARDIAL INFARCTION
     Route: 048
     Dates: start: 2017

REACTIONS (9)
  - Off label use [Unknown]
  - Bone density decreased [Unknown]
  - Sensitivity of teeth [Unknown]
  - Body height decreased [Unknown]
  - Haematuria [Not Recovered/Not Resolved]
  - Tooth extraction [Unknown]
  - Blood urine present [Not Recovered/Not Resolved]
  - Nausea [Recovering/Resolving]
  - Product use in unapproved indication [Unknown]

NARRATIVE: CASE EVENT DATE: 201706
